FAERS Safety Report 7532223-7 (Version None)
Quarter: 2011Q2

REPORT INFORMATION
  Report Type: 
  Country: None (occurrence: None)
  Receive Date: 20110608
  Receipt Date: 20110606
  Transmission Date: 20111010
  Serious: Yes (Other)
  Sender: FDA-Public Use
  Company Number: IT-PFIZER INC-2011122901

PATIENT
  Age: 28 Year
  Sex: Male

DRUGS (2)
  1. DEPAKENE [Suspect]
     Indication: ANXIETY
     Dosage: 500MG TABLETS, 1 DOSAGE UNIT, DAILY
     Route: 048
     Dates: start: 20110501, end: 20110506
  2. ZOLOFT [Suspect]
     Indication: ANXIETY
     Dosage: 50 MG, 1X/DAY
     Route: 048
     Dates: start: 20110501

REACTIONS (1)
  - PSYCHOMOTOR HYPERACTIVITY [None]
